FAERS Safety Report 15245461 (Version 1)
Quarter: 2018Q3

REPORT INFORMATION
  Report Type: Spontaneous
  Country: US (occurrence: US)
  Receive Date: 20180713
  Receipt Date: 20180713
  Transmission Date: 20181010
  Serious: Yes (Death)
  Sender: FDA-Public Use
  Company Number: None

PATIENT
  Age: 90 Year
  Sex: Male

DRUGS (10)
  1. ZOCOR [Concomitant]
     Active Substance: SIMVASTATIN
  2. CENTRUM [Concomitant]
     Active Substance: VITAMINS
  3. ECOTRIN [Concomitant]
     Active Substance: ASPIRIN
  4. LUPRON DEPOT [Suspect]
     Active Substance: LEUPROLIDE ACETATE
     Indication: PROSTATE CANCER
     Route: 048
     Dates: start: 20110117
  5. PRILOSEC [Concomitant]
     Active Substance: OMEPRAZOLE MAGNESIUM
  6. LASIX [Concomitant]
     Active Substance: FUROSEMIDE
  7. XTANDI [Concomitant]
     Active Substance: ENZALUTAMIDE
  8. CENTRUM [Concomitant]
     Active Substance: VITAMINS
  9. VITAMIN C [Concomitant]
     Active Substance: ASCORBIC ACID
  10. VITAMIN E [Concomitant]
     Active Substance: .ALPHA.-TOCOPHEROL

REACTIONS (1)
  - Death [None]

NARRATIVE: CASE EVENT DATE: 20180707
